FAERS Safety Report 14282144 (Version 1)
Quarter: 2017Q4

REPORT INFORMATION
  Report Type: Spontaneous
  Country: JP (occurrence: JP)
  Receive Date: 20171213
  Receipt Date: 20171213
  Transmission Date: 20180321
  Serious: Yes (Death, Hospitalization, Other)
  Sender: FDA-Public Use
  Company Number: JP-BRISTOL-MYERS SQUIBB COMPANY-BMS-2017-112674

PATIENT
  Age: 84 Year
  Sex: Male
  Weight: 47 kg

DRUGS (8)
  1. GLIMEPIRIDE. [Concomitant]
     Active Substance: GLIMEPIRIDE
     Indication: TYPE 2 DIABETES MELLITUS
     Dosage: 1 MG, QD
     Route: 065
  2. GLIMEPIRIDE. [Concomitant]
     Active Substance: GLIMEPIRIDE
     Indication: PRODUCT USED FOR UNKNOWN INDICATION
     Dosage: 0.5 MG, QD
     Route: 065
  3. NOVOMIX [Concomitant]
     Active Substance: INSULIN ASPART
     Indication: BLOOD GLUCOSE ABNORMAL
     Dosage: 1 DF, UNK
     Route: 065
  4. METGLUCO [Suspect]
     Active Substance: METFORMIN HYDROCHLORIDE
     Indication: TYPE 2 DIABETES MELLITUS
     Dosage: 250 MG, QD
     Route: 048
  5. VORICONAZOLE. [Suspect]
     Active Substance: VORICONAZOLE
     Indication: ASPERGILLUS TEST POSITIVE
     Dosage: 300 MG, QD
     Route: 048
  6. SITAGLIPTIN PHOSPHATE MONOHYDRATE [Concomitant]
     Active Substance: SITAGLIPTIN PHOSPHATE
     Indication: BLOOD GLUCOSE ABNORMAL
     Dosage: 50 MG, QD
     Route: 065
  7. METGLUCO [Suspect]
     Active Substance: METFORMIN HYDROCHLORIDE
     Indication: PRODUCT USED FOR UNKNOWN INDICATION
     Dosage: 500 MG, QD
     Route: 048
  8. GLIMEPIRIDE. [Concomitant]
     Active Substance: GLIMEPIRIDE
     Indication: PRODUCT USED FOR UNKNOWN INDICATION
     Dosage: 2 MG, QD
     Route: 065

REACTIONS (5)
  - Optic neuropathy [Unknown]
  - Headache [Unknown]
  - Blood glucose increased [Unknown]
  - Cardiac failure [Fatal]
  - Visual impairment [Unknown]
